FAERS Safety Report 4688971-X (Version None)
Quarter: 2005Q2

REPORT INFORMATION
  Report Type: 
  Country: None (occurrence: None)
  Receive Date: 20050613
  Receipt Date: 20020809
  Transmission Date: 20051028
  Serious: Yes (Death, Hospitalization)
  Sender: FDA-Public Use
  Company Number: PHRM2002FR02063

PATIENT
  Age: 65 Year
  Sex: Male

DRUGS (6)
  1. ESIDRIX [Suspect]
     Route: 048
     Dates: start: 20020814
  2. TAREG [Suspect]
     Indication: CARDIAC FAILURE
     Dosage: 40 MG, QD
     Route: 048
     Dates: start: 20020804, end: 20020808
  3. CORDARONE [Concomitant]
     Dosage: 200 MG/DAY
     Route: 048
  4. LASIX [Concomitant]
     Dosage: 250 MG, QD
     Route: 048
  5. ASPEGIC 325 [Concomitant]
     Dosage: 250 MG, QD
     Route: 048
  6. LEVOTHYROX [Concomitant]
     Route: 048

REACTIONS (28)
  - ACUTE PULMONARY OEDEMA [None]
  - ASTHENIA [None]
  - ATRIAL FIBRILLATION [None]
  - AZOTAEMIA [None]
  - BLISTER [None]
  - BLOOD ALKALINE PHOSPHATASE INCREASED [None]
  - BLOOD CHLORIDE DECREASED [None]
  - BLOOD CREATININE INCREASED [None]
  - BLOOD POTASSIUM INCREASED [None]
  - CARDIAC FAILURE [None]
  - CREPITATIONS [None]
  - DECREASED APPETITE [None]
  - DYSPNOEA [None]
  - GAMMA-GLUTAMYLTRANSFERASE INCREASED [None]
  - HYPONATRAEMIA [None]
  - HYPOTENSION [None]
  - INSOMNIA [None]
  - ISCHAEMIC CARDIOMYOPATHY [None]
  - LYMPHOCYTE COUNT DECREASED [None]
  - MEAN CELL HAEMOGLOBIN [None]
  - MEAN CELL VOLUME INCREASED [None]
  - OEDEMA PERIPHERAL [None]
  - OLIGURIA [None]
  - PALLOR [None]
  - RED BLOOD CELL COUNT DECREASED [None]
  - RENAL FAILURE [None]
  - SWELLING [None]
  - URINARY TRACT INFECTION [None]
